FAERS Safety Report 25239411 (Version 3)
Quarter: 2025Q2

REPORT INFORMATION
  Report Type: Spontaneous
  Country: DE (occurrence: DE)
  Receive Date: 20250425
  Receipt Date: 20250516
  Transmission Date: 20250717
  Serious: Yes (Other)
  Sender: AUROBINDO
  Company Number: DE-BRISTOL-MYERS SQUIBB COMPANY-2024-107116

PATIENT
  Age: 66 Year
  Sex: Male
  Weight: 65.5 kg

DRUGS (75)
  1. OXALIPLATIN [Suspect]
     Active Substance: OXALIPLATIN
     Indication: Oesophageal adenocarcinoma
     Dosage: 124 MILLIGRAM, FOR EVERY 2 WEEKS
     Route: 042
     Dates: start: 20240326
  2. IRINOTECAN [Suspect]
     Active Substance: IRINOTECAN
     Indication: Oesophageal adenocarcinoma
     Dosage: 329 MILLIGRAM ,FOR EVERY 2 WEEKS
     Route: 042
     Dates: start: 20240424
  3. OPDIVO [Suspect]
     Active Substance: NIVOLUMAB
     Indication: Oesophageal adenocarcinoma
     Dosage: 240 MILLIGRAM, FOR EVERY 2 WEEKS
     Route: 042
     Dates: start: 20240326, end: 20241011
  4. OPDIVO [Suspect]
     Active Substance: NIVOLUMAB
     Dosage: 240 MILLIGRAM, FOR EVERY 2 WEEKS
     Route: 042
     Dates: start: 20240326, end: 20241011
  5. OPDIVO [Suspect]
     Active Substance: NIVOLUMAB
     Dosage: 240 MILLIGRAM, FOR EVERY 2 WEEKS
     Route: 042
     Dates: start: 20240326, end: 20241011
  6. OPDIVO [Suspect]
     Active Substance: NIVOLUMAB
     Dosage: 240 MILLIGRAM, FOR EVERY 2 WEEKS
     Route: 042
     Dates: start: 20240326, end: 20241011
  7. OPDIVO [Suspect]
     Active Substance: NIVOLUMAB
     Dosage: 240 MILLIGRAM, FOR EVERY 2 WEEKS
     Route: 042
     Dates: start: 20240326, end: 20241011
  8. OPDIVO [Suspect]
     Active Substance: NIVOLUMAB
     Dosage: 240 MILLIGRAM, FOR EVERY 2 WEEKS
     Route: 042
     Dates: start: 20240326, end: 20241011
  9. OPDIVO [Suspect]
     Active Substance: NIVOLUMAB
     Dosage: 240 MILLIGRAM, FOR EVERY 2 WEEKS
     Route: 042
     Dates: start: 20240326, end: 20241011
  10. FLUOROURACIL [Suspect]
     Active Substance: FLUOROURACIL
     Indication: Oesophageal adenocarcinoma
     Dosage: 3660 MILLIGRAM, 5-FU IS
     Route: 042
     Dates: start: 20240326, end: 20241011
  11. BISOPROLOL [Concomitant]
     Active Substance: BISOPROLOL
     Indication: Product used for unknown indication
     Dosage: 2.5 MILLIGRAM, ONCE A DAY
     Route: 048
  12. LEVOTHYROXINE SODIUM [Concomitant]
     Active Substance: LEVOTHYROXINE SODIUM
     Indication: Product used for unknown indication
     Dosage: 200 MILLIGRAM, ONCE A DAY
     Route: 048
  13. CHOLECALCIFEROL [Concomitant]
     Active Substance: CHOLECALCIFEROL
     Indication: Product used for unknown indication
     Dosage: 2000 INTERNATIONAL UNIT, EVERY WEEK
     Route: 048
  14. VITAMIN B12 [Concomitant]
     Active Substance: CYANOCOBALAMIN
     Indication: Product used for unknown indication
     Route: 058
  15. VITAMIN B12 [Concomitant]
     Active Substance: CYANOCOBALAMIN
     Route: 058
     Dates: start: 20240425, end: 20240425
  16. DEXAMETHASONE [Concomitant]
     Active Substance: DEXAMETHASONE
     Indication: Prophylaxis
     Route: 048
     Dates: start: 20240411, end: 20240412
  17. DEXAMETHASONE [Concomitant]
     Active Substance: DEXAMETHASONE
     Route: 048
     Dates: start: 20240424, end: 20240424
  18. DEXAMETHASONE [Concomitant]
     Active Substance: DEXAMETHASONE
     Route: 048
     Dates: start: 20240508, end: 20240508
  19. DEXAMETHASONE [Concomitant]
     Active Substance: DEXAMETHASONE
     Route: 042
     Dates: start: 20240523, end: 20240523
  20. DEXAMETHASONE [Concomitant]
     Active Substance: DEXAMETHASONE
     Route: 048
     Dates: start: 20240613, end: 20240613
  21. DEXAMETHASONE [Concomitant]
     Active Substance: DEXAMETHASONE
     Route: 048
     Dates: start: 20240703, end: 20240703
  22. DEXAMETHASONE [Concomitant]
     Active Substance: DEXAMETHASONE
     Route: 048
     Dates: start: 20240717, end: 20240717
  23. DEXAMETHASONE [Concomitant]
     Active Substance: DEXAMETHASONE
     Route: 048
     Dates: start: 20240731, end: 20240731
  24. DEXAMETHASONE [Concomitant]
     Active Substance: DEXAMETHASONE
     Route: 048
     Dates: start: 20240821, end: 20240821
  25. DEXAMETHASONE [Concomitant]
     Active Substance: DEXAMETHASONE
     Route: 048
     Dates: start: 20240904, end: 20240904
  26. DEXAMETHASONE [Concomitant]
     Active Substance: DEXAMETHASONE
     Route: 048
     Dates: start: 20240918, end: 20240918
  27. DEXAMETHASONE [Concomitant]
     Active Substance: DEXAMETHASONE
     Route: 048
     Dates: start: 20241009, end: 20241009
  28. DEXAMETHASONE [Concomitant]
     Active Substance: DEXAMETHASONE
     Route: 048
     Dates: start: 20240326, end: 20240328
  29. LEUCOVORIN CALCIUM [Concomitant]
     Active Substance: LEUCOVORIN CALCIUM
     Indication: Product used for unknown indication
     Route: 042
     Dates: start: 20240410, end: 20240410
  30. LEUCOVORIN CALCIUM [Concomitant]
     Active Substance: LEUCOVORIN CALCIUM
     Route: 042
     Dates: start: 20240412, end: 20240412
  31. LEUCOVORIN CALCIUM [Concomitant]
     Active Substance: LEUCOVORIN CALCIUM
     Dosage: 366 MILLIGRAM, ONCE A DAY
     Route: 042
     Dates: start: 20240424, end: 20240425
  32. LEUCOVORIN CALCIUM [Concomitant]
     Active Substance: LEUCOVORIN CALCIUM
     Dosage: 366 MILLIGRAM, ONCE A DAY
     Route: 042
     Dates: start: 20240508, end: 20240509
  33. LEUCOVORIN CALCIUM [Concomitant]
     Active Substance: LEUCOVORIN CALCIUM
     Dosage: 366 MILLIGRAM, ONCE A DAY
     Route: 042
     Dates: start: 20240523, end: 20240524
  34. LEUCOVORIN CALCIUM [Concomitant]
     Active Substance: LEUCOVORIN CALCIUM
     Route: 042
     Dates: start: 20240703, end: 20240704
  35. LEUCOVORIN CALCIUM [Concomitant]
     Active Substance: LEUCOVORIN CALCIUM
     Route: 042
     Dates: start: 20240717, end: 20240718
  36. LEUCOVORIN CALCIUM [Concomitant]
     Active Substance: LEUCOVORIN CALCIUM
     Dosage: 3676 MILLIGRAM, ONCE A DAY
     Route: 042
     Dates: start: 20240731, end: 20240801
  37. LEUCOVORIN CALCIUM [Concomitant]
     Active Substance: LEUCOVORIN CALCIUM
     Dosage: 366 MILLIGRAM, ONCE A DAY
     Route: 042
     Dates: start: 20240821, end: 20240822
  38. LEUCOVORIN CALCIUM [Concomitant]
     Active Substance: LEUCOVORIN CALCIUM
     Dosage: 366 MILLIGRAM, ONCE A DAY
     Route: 042
     Dates: start: 20240904, end: 20240905
  39. LEUCOVORIN CALCIUM [Concomitant]
     Active Substance: LEUCOVORIN CALCIUM
     Dosage: 366 MILLIGRAM, ONCE A DAY
     Route: 042
     Dates: start: 20240918, end: 20240919
  40. LEUCOVORIN CALCIUM [Concomitant]
     Active Substance: LEUCOVORIN CALCIUM
     Dosage: 366 MILLIGRAM, ONCE A DAY
     Route: 042
     Dates: start: 20241009, end: 20241010
  41. LEUCOVORIN CALCIUM [Concomitant]
     Active Substance: LEUCOVORIN CALCIUM
     Route: 042
     Dates: start: 20240326, end: 20240327
  42. GRANISETRON [Concomitant]
     Active Substance: GRANISETRON
     Indication: Prophylaxis
     Route: 048
     Dates: start: 20240424, end: 20240424
  43. GRANISETRON [Concomitant]
     Active Substance: GRANISETRON
     Route: 048
     Dates: start: 20240508, end: 20240508
  44. GRANISETRON [Concomitant]
     Active Substance: GRANISETRON
     Route: 042
     Dates: start: 20240523, end: 20240523
  45. GRANISETRON [Concomitant]
     Active Substance: GRANISETRON
     Route: 048
     Dates: start: 20240613, end: 20240613
  46. GRANISETRON [Concomitant]
     Active Substance: GRANISETRON
     Route: 048
     Dates: start: 20240703, end: 20240703
  47. GRANISETRON [Concomitant]
     Active Substance: GRANISETRON
     Route: 048
     Dates: start: 20240717, end: 20240717
  48. GRANISETRON [Concomitant]
     Active Substance: GRANISETRON
     Route: 048
     Dates: start: 20240731, end: 20240801
  49. GRANISETRON [Concomitant]
     Active Substance: GRANISETRON
     Route: 048
     Dates: start: 20240821, end: 20240822
  50. GRANISETRON [Concomitant]
     Active Substance: GRANISETRON
     Route: 048
     Dates: start: 20240904, end: 20240905
  51. GRANISETRON [Concomitant]
     Active Substance: GRANISETRON
     Route: 048
     Dates: start: 20240918, end: 20240919
  52. GRANISETRON [Concomitant]
     Active Substance: GRANISETRON
     Dosage: 2 MILLIGRAM, ONCE A DAY
     Route: 048
     Dates: start: 20241009, end: 20241010
  53. GRANISETRON [Concomitant]
     Active Substance: GRANISETRON
     Route: 048
     Dates: start: 20240326, end: 20240326
  54. PREDNISOLONE [Concomitant]
     Active Substance: PREDNISOLONE
     Indication: Prophylaxis
     Route: 042
     Dates: start: 20240326, end: 20240326
  55. PREDNISOLONE [Concomitant]
     Active Substance: PREDNISOLONE
     Route: 048
     Dates: start: 20240522, end: 20240523
  56. DIMETHINDENE [Concomitant]
     Active Substance: DIMETHINDENE
     Indication: Prophylaxis
     Route: 042
     Dates: start: 20240410, end: 20240410
  57. DIMETHINDENE [Concomitant]
     Active Substance: DIMETHINDENE
     Route: 042
     Dates: start: 20240326, end: 20240326
  58. PREDNISOLONE SODIUM SUCCINATE [Concomitant]
     Active Substance: PREDNISOLONE SODIUM SUCCINATE
     Indication: Prophylaxis
     Route: 042
     Dates: start: 20240410, end: 20240410
  59. ACETAMINOPHEN [Concomitant]
     Active Substance: ACETAMINOPHEN
     Indication: Product used for unknown indication
     Route: 048
     Dates: start: 20240411, end: 20240411
  60. PIPERACILLIN SODIUM\TAZOBACTAM SODIUM [Concomitant]
     Active Substance: PIPERACILLIN SODIUM\TAZOBACTAM SODIUM
     Indication: Product used for unknown indication
     Route: 042
     Dates: start: 20240412, end: 20240415
  61. PIPERACILLIN SODIUM\TAZOBACTAM SODIUM [Concomitant]
     Active Substance: PIPERACILLIN SODIUM\TAZOBACTAM SODIUM
     Dosage: 4.5 GRAM, ONCE A DAY
     Route: 042
     Dates: start: 20240411, end: 20240411
  62. ZOLPIDEM [Concomitant]
     Active Substance: ZOLPIDEM TARTRATE
     Indication: Prophylaxis
     Route: 048
     Dates: start: 20240424, end: 20240424
  63. ZOLPIDEM [Concomitant]
     Active Substance: ZOLPIDEM TARTRATE
     Route: 048
     Dates: start: 20240425, end: 20240425
  64. ZOLPIDEM [Concomitant]
     Active Substance: ZOLPIDEM TARTRATE
     Dosage: 10 MILLIGRAM, ONCE A DAY
     Route: 048
     Dates: start: 20240508, end: 20240509
  65. ZOLPIDEM [Concomitant]
     Active Substance: ZOLPIDEM TARTRATE
     Dosage: 10 MILLIGRAM, ONCE A DAY
     Route: 048
     Dates: start: 20240523, end: 20240524
  66. ZOLPIDEM [Concomitant]
     Active Substance: ZOLPIDEM TARTRATE
     Route: 048
     Dates: start: 20240413, end: 20240413
  67. ATROPINE [Concomitant]
     Active Substance: ATROPINE
     Indication: Prophylaxis
     Route: 058
     Dates: start: 20240523, end: 20240523
  68. ATROPINE [Concomitant]
     Active Substance: ATROPINE
     Route: 058
     Dates: start: 20240613, end: 20240613
  69. ATROPINE [Concomitant]
     Active Substance: ATROPINE
     Route: 058
     Dates: start: 20240508, end: 20240508
  70. ATROPINE [Concomitant]
     Active Substance: ATROPINE
     Route: 058
     Dates: start: 20240424, end: 20240424
  71. LIPEGFILGRASTIM [Concomitant]
     Active Substance: LIPEGFILGRASTIM
     Indication: Prophylaxis
     Route: 058
     Dates: start: 20240510, end: 20240510
  72. LEUCOVORIN [Concomitant]
     Active Substance: LEUCOVORIN\LEUCOVORIN CALCIUM
     Indication: Product used for unknown indication
     Dosage: 366 MILLIGRAM, ONCE A DAY
     Route: 042
     Dates: start: 20240613, end: 20240614
  73. LENOGRASTIM [Concomitant]
     Active Substance: LENOGRASTIM
     Indication: Product used for unknown indication
     Route: 058
     Dates: start: 20240412, end: 20240413
  74. ENOXAPARIN SODIUM [Concomitant]
     Active Substance: ENOXAPARIN SODIUM
     Indication: Prophylaxis
     Route: 058
     Dates: start: 20240326, end: 20240327
  75. PEGFILGRASTIM [Concomitant]
     Active Substance: PEGFILGRASTIM
     Indication: Prophylaxis
     Route: 058
     Dates: start: 20240615, end: 20240615

REACTIONS (8)
  - Hypothyroidism [Recovered/Resolved]
  - Neutropenia [Recovered/Resolved]
  - Fatigue [Not Recovered/Not Resolved]
  - Abdominal pain [Recovered/Resolved]
  - Diarrhoea [Recovered/Resolved]
  - Nausea [Recovered/Resolved]
  - Rash [Recovered/Resolved]
  - Intentional product use issue [Unknown]

NARRATIVE: CASE EVENT DATE: 20240326
